FAERS Safety Report 7459616-0 (Version None)
Quarter: 2011Q2

REPORT INFORMATION
  Report Type: 
  Country: None (occurrence: None)
  Receive Date: 20110504
  Receipt Date: 20110504
  Transmission Date: 20111010
  Serious: No
  Sender: FDA-Public Use
  Company Number: None

PATIENT
  Sex: Male
  Weight: 115.2136 kg

DRUGS (1)
  1. REMICADE [Suspect]
     Indication: ANKYLOSING SPONDYLITIS
     Dosage: 650 MG

REACTIONS (6)
  - DIZZINESS [None]
  - CHEST DISCOMFORT [None]
  - INFUSION RELATED REACTION [None]
  - TUNNEL VISION [None]
  - PRESYNCOPE [None]
  - DRY MOUTH [None]
